FAERS Safety Report 6384368-5 (Version None)
Quarter: 2009Q4

REPORT INFORMATION
  Report Type: 
  Country: None (occurrence: None)
  Receive Date: 20091001
  Receipt Date: 20090928
  Transmission Date: 20100525
  Serious: Yes (Death)
  Sender: FDA-Public Use
  Company Number: US-ASTRAZENECA-2009SE16396

PATIENT
  Age: 18779 Day

DRUGS (1)
  1. MERREM [Suspect]
     Route: 042

REACTIONS (1)
  - INJURY [None]
